FAERS Safety Report 20453587 (Version 1)
Quarter: 2022Q1

REPORT INFORMATION
  Report Type: Spontaneous
  Country: US (occurrence: US)
  Receive Date: 20220210
  Receipt Date: 20220210
  Transmission Date: 20220424
  Serious: Yes (Hospitalization)
  Sender: FDA-Public Use
  Company Number: US-NOVOPROD-887506

PATIENT
  Sex: Female

DRUGS (1)
  1. NOVOLOG [Suspect]
     Active Substance: INSULIN ASPART
     Indication: Type 2 diabetes mellitus
     Dosage: UNK
     Route: 058
     Dates: start: 2007

REACTIONS (6)
  - COVID-19 [Unknown]
  - Chest pain [Unknown]
  - Blood glucose increased [Unknown]
  - Gait inability [Unknown]
  - Product storage error [Not Recovered/Not Resolved]
  - Incorrect product administration duration [Not Recovered/Not Resolved]
